FAERS Safety Report 25562021 (Version 1)
Quarter: 2025Q3

REPORT INFORMATION
  Report Type: Spontaneous
  Country: US (occurrence: US)
  Receive Date: 20250716
  Receipt Date: 20250716
  Transmission Date: 20251020
  Serious: No
  Sender: AUROBINDO
  Company Number: US-AUROBINDO-AUR-APL-2024-027571

PATIENT
  Sex: Female

DRUGS (1)
  1. METRONIDAZOLE [Suspect]
     Active Substance: METRONIDAZOLE
     Indication: Product used for unknown indication
     Route: 065

REACTIONS (6)
  - Abdominal discomfort [Unknown]
  - Product use complaint [Unknown]
  - Product taste abnormal [Unknown]
  - Product after taste [Unknown]
  - Product physical issue [Unknown]
  - Product coating issue [Unknown]
